FAERS Safety Report 14632337 (Version 1)
Quarter: 2018Q1

REPORT INFORMATION
  Report Type: Spontaneous
  Country: US (occurrence: US)
  Receive Date: 20180313
  Receipt Date: 20180313
  Transmission Date: 20180509
  Serious: Yes (Other)
  Sender: FDA-Public Use
  Company Number: US-ENDO PHARMACEUTICALS INC-2018-022280

PATIENT
  Sex: Male
  Weight: 88.44 kg

DRUGS (2)
  1. TESTOSTERONE GEL [Suspect]
     Active Substance: TESTOSTERONE
     Indication: BLOOD TESTOSTERONE DECREASED
     Dosage: UNK UNKNOWN, UNKNOWN
     Route: 061
     Dates: start: 2014, end: 201605
  2. TESTOSTERONE GEL [Suspect]
     Active Substance: TESTOSTERONE
     Dosage: UNK UNKNOWN, UNKNOWN
     Route: 061
     Dates: start: 201710

REACTIONS (3)
  - Product container issue [Unknown]
  - Drug dose omission [Unknown]
  - Prostate cancer [Unknown]

NARRATIVE: CASE EVENT DATE: 2016
